FAERS Safety Report 20459894 (Version 1)
Quarter: 2022Q1

REPORT INFORMATION
  Report Type: Other
  Country: US (occurrence: None)
  Receive Date: 20220211
  Receipt Date: 20220211
  Transmission Date: 20220423
  Serious: No
  Sender: FDA-Public Use
  Company Number: US-ROCHE-3018638

PATIENT
  Age: 45 Year
  Sex: Female
  Weight: 52.891 kg

DRUGS (8)
  1. OCREVUS [Suspect]
     Active Substance: OCRELIZUMAB
     Indication: Relapsing-remitting multiple sclerosis
     Dosage: YES, NOW LAST DATE OF TREATMENT: 18/AUG/2021
     Route: 042
  2. OCREVUS [Suspect]
     Active Substance: OCRELIZUMAB
     Dosage: INFUSE 600 MG EVERY 6 MONTHS
     Route: 042
     Dates: start: 20210815
  3. GABAPENTIN [Concomitant]
     Active Substance: GABAPENTIN
     Indication: Pain
     Dosage: TAKES 2 IN THE MORNING AND 2 AT NIGHT ;ONGOING: YES
     Route: 050
     Dates: start: 202107
  4. GABAPENTIN [Concomitant]
     Active Substance: GABAPENTIN
     Indication: Neuropathy peripheral
  5. HYDROCODONE [Concomitant]
     Active Substance: HYDROCODONE
     Indication: Pain
     Dosage: AS NEEDED
     Route: 048
     Dates: start: 202109
  6. HYDROCODONE [Concomitant]
     Active Substance: HYDROCODONE
     Indication: Neuropathy peripheral
  7. ADDERALL XR [Concomitant]
     Active Substance: AMPHETAMINE ASPARTATE\AMPHETAMINE SULFATE\DEXTROAMPHETAMINE SACCHARATE\DEXTROAMPHETAMINE SULFATE
     Indication: Fatigue
     Route: 048
     Dates: start: 202111
  8. XANAX [Concomitant]
     Active Substance: ALPRAZOLAM
     Dosage: BEDTIME ;ONGOING: YES
     Route: 048
     Dates: start: 202111

REACTIONS (1)
  - COVID-19 [Recovered/Resolved]

NARRATIVE: CASE EVENT DATE: 20220101
